FAERS Safety Report 10969121 (Version 2)
Quarter: 2015Q2

REPORT INFORMATION
  Report Type: Spontaneous
  Country: MA (occurrence: MA)
  Receive Date: 20150331
  Receipt Date: 20150423
  Transmission Date: 20150821
  Serious: Yes (Disabling, Other)
  Sender: FDA-Public Use
  Company Number: PHHY2015MA035757

PATIENT
  Age: 60 Year
  Sex: Female

DRUGS (1)
  1. ACLASTA [Suspect]
     Active Substance: ZOLEDRONIC ACID
     Indication: OSTEOPOROSIS
     Dosage: 5 MG, UNK (ONCE YEARLY)
     Route: 042
     Dates: start: 20150304

REACTIONS (9)
  - C-reactive protein increased [Recovered/Resolved]
  - Insomnia [Recovered/Resolved]
  - Dry mouth [Recovered/Resolved]
  - Hyperglycaemia [Unknown]
  - Sense of oppression [Recovered/Resolved]
  - Conjunctivitis [Recovered/Resolved]
  - Arthralgia [Recovered/Resolved]
  - Hyperthermia [Recovered/Resolved]
  - Decreased appetite [Recovered/Resolved]

NARRATIVE: CASE EVENT DATE: 20150305
